FAERS Safety Report 7408363-X (Version None)
Quarter: 2011Q2

REPORT INFORMATION
  Report Type: 
  Country: None (occurrence: None)
  Receive Date: 20110412
  Receipt Date: 20110404
  Transmission Date: 20111010
  Serious: Yes (Other)
  Sender: FDA-Public Use
  Company Number: US-JNJFOC-20110304873

PATIENT
  Sex: Female

DRUGS (1)
  1. LEVAQUIN [Suspect]
     Indication: RENAL DISORDER
     Route: 048

REACTIONS (9)
  - PARAESTHESIA [None]
  - JOINT INJURY [None]
  - DEPRESSION [None]
  - HYPOAESTHESIA FACIAL [None]
  - DRUG EXPOSURE DURING PREGNANCY [None]
  - MUSCLE RUPTURE [None]
  - TENDON DISORDER [None]
  - BURNING SENSATION [None]
  - MUSCLE STRAIN [None]
